FAERS Safety Report 8089622-7 (Version None)
Quarter: 2012Q1

REPORT INFORMATION
  Report Type: 
  Country: None (occurrence: None)
  Receive Date: 20120131
  Receipt Date: 20120123
  Transmission Date: 20120608
  Serious: Yes (Hospitalization, Other)
  Sender: FDA-Public Use
  Company Number: US-AMGEN-USASP2012001813

PATIENT
  Age: 53 Year
  Sex: Male

DRUGS (12)
  1. DANAZOL [Concomitant]
     Dosage: UNK
  2. HUMIRA [Concomitant]
     Dosage: 40 MG, QWK
     Route: 058
  3. LORTAB                             /00917501/ [Concomitant]
  4. POTASSIUM [Concomitant]
  5. ENABLEX                            /01760401/ [Concomitant]
  6. BENADRYL [Concomitant]
  7. METHOTREXATE [Concomitant]
  8. HUMIRA [Concomitant]
     Dosage: UNK
     Dates: start: 20111217
  9. STOOL SOFTENER [Concomitant]
  10. LISINOPRIL [Concomitant]
     Dosage: UNK
  11. ENBREL [Suspect]
     Indication: PSORIASIS
     Dosage: 50 MG, QWK, AND 100MG ONCE WEEKLY
     Dates: start: 20090326, end: 20111115
  12. HUMIRA [Concomitant]
     Indication: PSORIASIS
     Dosage: 80 MG, QWK
     Route: 058
     Dates: start: 20111115

REACTIONS (9)
  - TRIGEMINAL NEURALGIA [None]
  - BACTERIAL INFECTION [None]
  - CELLULITIS [None]
  - PSORIASIS [None]
  - DRUG RASH WITH EOSINOPHILIA AND SYSTEMIC SYMPTOMS [None]
  - THROMBOCYTOPENIA [None]
  - OEDEMA PERIPHERAL [None]
  - RENAL FAILURE ACUTE [None]
  - LIVER FUNCTION TEST ABNORMAL [None]
